FAERS Safety Report 14974291 (Version 1)
Quarter: 2018Q2

REPORT INFORMATION
  Report Type: Report from Study
  Country: CA (occurrence: CA)
  Receive Date: 20180605
  Receipt Date: 20180605
  Transmission Date: 20180711
  Serious: Yes (Other)
  Sender: FDA-Public Use
  Company Number: CA-AMGEN-CANSL2018072846

PATIENT
  Age: 80 Year
  Sex: Female

DRUGS (1)
  1. PROLIA [Suspect]
     Active Substance: DENOSUMAB
     Indication: PRODUCT USED FOR UNKNOWN INDICATION
     Dosage: UNK UNK, Q6MO
     Route: 065
     Dates: start: 2012, end: 2017

REACTIONS (17)
  - Rectal haemorrhage [Unknown]
  - Fatigue [Unknown]
  - Arthritis [Unknown]
  - Gait disturbance [Unknown]
  - Musculoskeletal stiffness [Unknown]
  - Bone pain [Unknown]
  - Influenza like illness [Unknown]
  - Hysterectomy [Unknown]
  - Upper limb fracture [Unknown]
  - Myocardial infarction [Unknown]
  - Knee operation [Unknown]
  - Fracture [Unknown]
  - Gastrointestinal disorder [Unknown]
  - Drug ineffective [Unknown]
  - Fall [Unknown]
  - Exostosis [Unknown]
  - Bone disorder [Unknown]
